FAERS Safety Report 7807343-X (Version None)
Quarter: 2011Q4

REPORT INFORMATION
  Report Type: 
  Country: None (occurrence: None)
  Receive Date: 20111011
  Receipt Date: 20111005
  Transmission Date: 20120403
  Serious: Yes (Other)
  Sender: FDA-Public Use
  Company Number: CH-PFIZER INC-2011237280

PATIENT
  Age: 74 Year
  Sex: Male

DRUGS (11)
  1. DEPAKENE [Concomitant]
     Indication: BIPOLAR DISORDER
     Dosage: 1000 MG, 2X/DAY
     Route: 048
  2. TOVIAZ [Suspect]
     Indication: PROSTATIC OPERATION
     Dosage: 4 MG, 1X/DAY
     Route: 048
     Dates: start: 20110722, end: 20110805
  3. VENLAFAXINE [Concomitant]
     Indication: BIPOLAR DISORDER
     Dosage: 75 MG, 1X/DAY
  4. ASPIRIN [Concomitant]
     Dosage: 100 MG, 1X/DAY
  5. TOVIAZ [Interacting]
     Dosage: 4 MG, 1X/DAY
     Route: 048
     Dates: start: 20110808, end: 20110822
  6. ANTABUSE [Concomitant]
     Dosage: 0.5 DF, 1X/DAY
  7. TOVIAZ [Interacting]
     Dosage: 8 MG, 1X/DAY
     Route: 048
     Dates: start: 20110824, end: 20110829
  8. SEROQUEL [Interacting]
     Indication: BIPOLAR DISORDER
     Dosage: 75 MG, 1X/DAY
     Route: 048
  9. ACIDUM FOLICUM STREULI [Concomitant]
     Dosage: 5 MG, 1X/DAY
     Route: 048
  10. DIOVAN HCT [Concomitant]
     Dosage: 160/12.5 MG, 1X/DAY
  11. LESCOL [Concomitant]
     Dosage: 80 MG, 1X/DAY

REACTIONS (2)
  - DRUG INTERACTION [None]
  - MANIA [None]
